FAERS Safety Report 6634783-7 (Version None)
Quarter: 2010Q1

REPORT INFORMATION
  Report Type: 
  Country: None (occurrence: None)
  Receive Date: 20100315
  Receipt Date: 20100305
  Transmission Date: 20100710
  Serious: Yes (Other)
  Sender: FDA-Public Use
  Company Number: GB-PFIZER INC-2010029308

PATIENT
  Age: 50 Year
  Sex: Female

DRUGS (2)
  1. DEPO-PROVERA [Suspect]
  2. BENDROFLUMETHIAZIDE [Concomitant]

REACTIONS (1)
  - SUBARACHNOID HAEMORRHAGE [None]
